APPROVED DRUG PRODUCT: ERTUGLIFLOZIN
Active Ingredient: ERTUGLIFLOZIN
Strength: 5MG
Dosage Form/Route: TABLET;ORAL
Application: A217071 | Product #001
Applicant: HETERO LABS LTD UNIT V
Approved: Sep 17, 2024 | RLD: No | RS: No | Type: DISCN